FAERS Safety Report 4312876-7 (Version None)
Quarter: 2004Q1

REPORT INFORMATION
  Report Type: 
  Country: None (occurrence: None)
  Receive Date: 20040304
  Receipt Date: 20040212
  Transmission Date: 20041129
  Serious: Yes (Hospitalization, Other)
  Sender: FDA-Public Use
  Company Number: JP_031001904

PATIENT
  Age: 9 Week
  Sex: Female
  Weight: 1 kg

DRUGS (7)
  1. VANCOMYCIN [Suspect]
     Indication: ENTEROCOLITIS
     Dosage: 8 MG/2 DAY
     Dates: start: 20030228, end: 20030331
  2. VANCOMYCIN [Suspect]
     Indication: STAPHYLOCOCCAL INFECTION
     Dosage: 8 MG/2 DAY
     Dates: start: 20030228, end: 20030331
  3. CARBENIN [Concomitant]
  4. HABEKACIN(ARBEKACIN) [Concomitant]
  5. FUTHAN(NAFAMOSTAT MESILATE) [Concomitant]
  6. BIFIDOBACTERIA [Concomitant]
  7. LACTOBACILLUSCASEI [Concomitant]

REACTIONS (8)
  - CONDITION AGGRAVATED [None]
  - DISSEMINATED INTRAVASCULAR COAGULATION [None]
  - GASTROINTESTINAL NECROSIS [None]
  - HYPOKALAEMIA [None]
  - INCISION SITE COMPLICATION [None]
  - INTESTINAL PERFORATION [None]
  - POST PROCEDURAL COMPLICATION [None]
  - RENAL TUBULAR DISORDER [None]
